FAERS Safety Report 9626901 (Version 2)
Quarter: 2013Q4

REPORT INFORMATION
  Report Type: Report from Study
  Country: JP (occurrence: JP)
  Receive Date: 20131016
  Receipt Date: 20131016
  Transmission Date: 20140711
  Serious: Yes (Hospitalization)
  Sender: FDA-Public Use
  Company Number: JP-TAKEDA-TCI2013A00191

PATIENT
  Age: 71 Year
  Sex: Male
  Weight: 36 kg

DRUGS (2)
  1. LANSOPRAZOLE [Suspect]
     Indication: PROPHYLAXIS AGAINST GASTROINTESTINAL ULCER
     Dosage: 10 MG, QD
     Route: 048
     Dates: start: 20121126
  2. LANSOPRAZOLE [Suspect]
     Dosage: 10 MG, QD
     Route: 048
     Dates: start: 20120608, end: 20121125

REACTIONS (1)
  - Herpes virus infection [Recovered/Resolved]
